FAERS Safety Report 4718401-0 (Version None)
Quarter: 2005Q3

REPORT INFORMATION
  Report Type: 
  Country: None (occurrence: None)
  Receive Date: 20050720
  Receipt Date: 20000222
  Transmission Date: 20060218
  Serious: Yes (Hospitalization)
  Sender: FDA-Public Use
  Company Number: 2000UW00601

PATIENT
  Age: 59 Year
  Sex: Male
  Weight: 82 kg

DRUGS (8)
  1. ATENOLOL [Suspect]
     Indication: HYPERTENSION
     Route: 048
     Dates: start: 19991004, end: 19991223
  2. BENDROFLUMETHIAZIDE/ POTASSIUM CHLORIDE [Suspect]
     Indication: HYPERTENSION
     Route: 048
     Dates: start: 19991004, end: 19991223
  3. BENDROFLUMETHIAZIDE/ POTASSIUM CHLORIDE [Suspect]
     Route: 048
     Dates: start: 20010703, end: 20020131
  4. BENDROFLUMETHIAZIDE/ POTASSIUM CHLORIDE [Suspect]
     Route: 048
     Dates: start: 20020408, end: 20020416
  5. VENTOLIN [Concomitant]
     Dates: start: 19950101, end: 20020131
  6. ATROVENT [Concomitant]
     Dates: start: 19950101, end: 20020121
  7. FRUMIL [Concomitant]
     Dates: start: 19991231, end: 20020131
  8. PULMICORT [Concomitant]
     Dates: start: 19950101, end: 20020205

REACTIONS (4)
  - CHRONIC OBSTRUCTIVE PULMONARY DISEASE [None]
  - INFECTION [None]
  - LEFT VENTRICULAR FAILURE [None]
  - PNEUMONIA [None]
